FAERS Safety Report 20462100 (Version 1)
Quarter: 2022Q1

REPORT INFORMATION
  Report Type: Spontaneous
  Country: CA (occurrence: CA)
  Receive Date: 20220211
  Receipt Date: 20220211
  Transmission Date: 20220423
  Serious: Yes (Hospitalization)
  Sender: FDA-Public Use
  Company Number: None

PATIENT
  Age: 59 Year
  Sex: Male

DRUGS (14)
  1. LURASIDONE HYDROCHLORIDE [Suspect]
     Active Substance: LURASIDONE HYDROCHLORIDE
     Indication: Somatic delusion
     Dosage: 120 MG, QD
     Route: 048
  2. LURASIDONE HYDROCHLORIDE [Suspect]
     Active Substance: LURASIDONE HYDROCHLORIDE
     Indication: Bipolar disorder
  3. CLOZAPINE [Suspect]
     Active Substance: CLOZAPINE
     Indication: Somatic delusion
     Dosage: 25 MG, QD
     Route: 048
  4. CLOZAPINE [Suspect]
     Active Substance: CLOZAPINE
     Indication: Bipolar disorder
  5. GABAPENTIN [Suspect]
     Active Substance: GABAPENTIN
     Indication: Somatic delusion
     Dosage: 300 MG, TID
     Route: 048
  6. GABAPENTIN [Suspect]
     Active Substance: GABAPENTIN
     Indication: Bipolar disorder
  7. VENLAFAXINE HYDROCHLORIDE [Suspect]
     Active Substance: VENLAFAXINE HYDROCHLORIDE
     Indication: Somatic delusion
     Dosage: 75 MG, QD
     Route: 048
  8. VENLAFAXINE HYDROCHLORIDE [Suspect]
     Active Substance: VENLAFAXINE HYDROCHLORIDE
     Indication: Bipolar disorder
  9. ZOPICLONE [Suspect]
     Active Substance: ZOPICLONE
     Indication: Somatic delusion
     Dosage: 7.5 MG, QD
     Route: 065
  10. ZOPICLONE [Suspect]
     Active Substance: ZOPICLONE
     Indication: Irritability
     Dosage: 7.5 MG, QID
     Route: 065
  11. ZOPICLONE [Suspect]
     Active Substance: ZOPICLONE
     Indication: Electroencephalogram abnormal
  12. ZOPICLONE [Suspect]
     Active Substance: ZOPICLONE
     Indication: Bipolar disorder
  13. PHENELZINE [Concomitant]
     Active Substance: PHENELZINE
     Indication: Somatic delusion
     Dosage: 45 MG, BID
     Route: 048
  14. PHENELZINE [Concomitant]
     Active Substance: PHENELZINE
     Indication: Bipolar disorder

REACTIONS (2)
  - Drug ineffective [Unknown]
  - Off label use [Unknown]
